FAERS Safety Report 9129943 (Version 1)
Quarter: 2013Q1

REPORT INFORMATION
  Report Type: Spontaneous
  Country: US (occurrence: US)
  Receive Date: 20130228
  Receipt Date: 20130228
  Transmission Date: 20140127
  Serious: No
  Sender: FDA-Public Use
  Company Number: US-009507513-1302USA012381

PATIENT
  Age: 21 Year
  Sex: Female
  Weight: 62.59 kg

DRUGS (3)
  1. NEXPLANON [Suspect]
     Indication: CONTRACEPTION
     Dosage: 1 68 MG ROD UP TO 3 YRS
     Route: 059
     Dates: start: 20130114
  2. TYLENOL [Concomitant]
     Indication: HEADACHE
     Dosage: UNK, PRN
  3. ADVIL [Concomitant]
     Indication: HEADACHE
     Dosage: UNK, PRN

REACTIONS (7)
  - Parosmia [Unknown]
  - Flatulence [Unknown]
  - Fatigue [Unknown]
  - Pruritus [Unknown]
  - Increased appetite [Unknown]
  - Nausea [Unknown]
  - Unintended pregnancy [Unknown]
